FAERS Safety Report 12523808 (Version 1)
Quarter: 2016Q3

REPORT INFORMATION
  Report Type: Spontaneous
  Country: IT (occurrence: IT)
  Receive Date: 20160704
  Receipt Date: 20160704
  Transmission Date: 20161109
  Serious: Yes (Other)
  Sender: FDA-Public Use
  Company Number: IT-ACCORD-042013

PATIENT
  Age: 48 Year
  Sex: Female

DRUGS (4)
  1. CISPLATIN. [Suspect]
     Active Substance: CISPLATIN
     Indication: LUNG ADENOCARCINOMA
     Dosage: DAY1, EVERY 21 DAYS AT 4 CYCLES
     Dates: start: 20141001
  2. CUSTIRSEN [Suspect]
     Active Substance: CUSTIRSEN
     Indication: LUNG ADENOCARCINOMA
     Dosage: TV-1011/OGX-011 (CUSTIRSEN)
  3. PEMETREXED [Suspect]
     Active Substance: PEMETREXED
     Indication: LUNG ADENOCARCINOMA
     Dosage: DAY1, EVERY 21 DAYS AT 4 CYCLES
     Dates: start: 20141001
  4. DOCETAXEL. [Suspect]
     Active Substance: DOCETAXEL
     Indication: LUNG ADENOCARCINOMA
     Dosage: SECOND LINE CHEMOTHERAPY, AT DAY 1 EVERY 21 DAYS
     Dates: start: 201502

REACTIONS (1)
  - Disease progression [Unknown]

NARRATIVE: CASE EVENT DATE: 201410
